FAERS Safety Report 7935610-8 (Version None)
Quarter: 2011Q4

REPORT INFORMATION
  Report Type: 
  Country: None (occurrence: None)
  Receive Date: 20111123
  Receipt Date: 20111111
  Transmission Date: 20120403
  Serious: Yes (Other)
  Sender: FDA-Public Use
  Company Number: DK-ELI_LILLY_AND_COMPANY-DK201111004717

PATIENT

DRUGS (2)
  1. FLUOXETINE HCL [Suspect]
     Dosage: UNK
     Route: 064
     Dates: start: 20050101
  2. AKARIN [Concomitant]
     Dosage: UNK
     Dates: start: 20050101, end: 20050101

REACTIONS (2)
  - FOETAL EXPOSURE DURING PREGNANCY [None]
  - AUTISM [None]
